FAERS Safety Report 7892421-X (Version None)
Quarter: 2011Q4

REPORT INFORMATION
  Report Type: 
  Country: None (occurrence: None)
  Receive Date: 20111101
  Receipt Date: 20111024
  Transmission Date: 20120403
  Serious: Yes (Hospitalization, Other)
  Sender: FDA-Public Use
  Company Number: 1085851

PATIENT
  Age: 25 Year
  Sex: Female
  Weight: 46 kg

DRUGS (17)
  1. MEROPENEM [Suspect]
     Indication: CYSTIC FIBROSIS
     Dosage: 2 G GRAM(S)  INTRAVENOUS (NOT OTHERWISE SPECIFIED)
     Route: 042
     Dates: start: 20110511, end: 20110511
  2. (NOVORAPID) [Concomitant]
  3. PREDNISOLONE [Concomitant]
  4. PULMOZYME [Concomitant]
  5. TIOPRONIN [Concomitant]
  6. FLUCONAZOLE [Concomitant]
  7. SYMBICORT [Concomitant]
  8. AZITHROMYCIN [Concomitant]
  9. (COLOMYCIN /00013203/) [Concomitant]
  10. (PROMIXIN /00210601/) [Concomitant]
  11. (VITAMIN E /00110501/) [Concomitant]
  12. (DOMPERIDONE) [Concomitant]
  13. SODIUM CHLORIDE [Concomitant]
  14. TOBRAMYCIN [Concomitant]
  15. (VITAMIN A + D) [Concomitant]
  16. VORICONAZOLE [Concomitant]
  17. CIPRO [Concomitant]

REACTIONS (3)
  - HYPOXIA [None]
  - DYSPNOEA [None]
  - CYANOSIS [None]
